FAERS Safety Report 9429532 (Version 1)
Quarter: 2013Q3

REPORT INFORMATION
  Report Type: Spontaneous
  Country: US (occurrence: US)
  Receive Date: 20130730
  Receipt Date: 20130730
  Transmission Date: 20140515
  Serious: No
  Sender: FDA-Public Use
  Company Number: US-ABBOTT-13P-163-1043035-00

PATIENT
  Age: 59 Year
  Sex: Female
  Weight: 67.19 kg

DRUGS (4)
  1. NIASPAN (COATED) [Suspect]
     Indication: BLOOD CHOLESTEROL INCREASED
     Dates: start: 201202, end: 201212
  2. NIASPAN (COATED) [Suspect]
     Dates: start: 20130128
  3. CRESTOR [Concomitant]
     Indication: BLOOD CHOLESTEROL INCREASED
  4. ASPIRIN [Concomitant]
     Indication: ROUTINE HEALTH MAINTENANCE

REACTIONS (3)
  - Flushing [Not Recovered/Not Resolved]
  - Face oedema [Recovering/Resolving]
  - Pruritus [Recovered/Resolved]
